FAERS Safety Report 8538017-8 (Version None)
Quarter: 2012Q3

REPORT INFORMATION
  Report Type: 
  Country: None (occurrence: None)
  Receive Date: 20120725
  Receipt Date: 20120723
  Transmission Date: 20120928
  Serious: No
  Sender: FDA-Public Use
  Company Number: US-ASTRAZENECA-2012SE48564

PATIENT
  Age: 71 Year
  Sex: Female
  Weight: 44.5 kg

DRUGS (4)
  1. SYMBICORT [Suspect]
     Dosage: 160/4.5, ONE PUFF BID
     Route: 055
     Dates: start: 20120301
  2. CALCITONIN SALMON [Concomitant]
  3. SYMBICORT [Suspect]
     Indication: EMPHYSEMA
     Dosage: 160/4.5, TWO PUFF BID
     Route: 055
  4. SYNTHROID [Concomitant]
     Indication: THYROID DISORDER

REACTIONS (11)
  - ACCIDENTAL EXPOSURE [None]
  - DYSPNOEA [None]
  - FEELING HOT [None]
  - PALPITATIONS [None]
  - OFF LABEL USE [None]
  - FEELING ABNORMAL [None]
  - INTENTIONAL DRUG MISUSE [None]
  - DRY MOUTH [None]
  - HEADACHE [None]
  - CIRCUMSTANCE OR INFORMATION CAPABLE OF LEADING TO MEDICATION ERROR [None]
  - FLUSHING [None]
